FAERS Safety Report 10042482 (Version 1)
Quarter: 2014Q1

REPORT INFORMATION
  Report Type: Spontaneous
  Country: US (occurrence: US)
  Receive Date: 20140327
  Receipt Date: 20140327
  Transmission Date: 20141002
  Serious: No
  Sender: FDA-Public Use
  Company Number: US-B.I. PHARMACEUTICALS,INC./RIDGEFIELD-2014-BI-12741BP

PATIENT
  Age: 91 Year
  Sex: Female
  Weight: 57 kg

DRUGS (7)
  1. SPIRIVA [Suspect]
     Indication: CHRONIC OBSTRUCTIVE PULMONARY DISEASE
     Dosage: 18 MCG
     Route: 048
     Dates: start: 2011
  2. SPIRIVA [Suspect]
     Dosage: 18 MCG
     Route: 055
     Dates: start: 2011
  3. EXCELON [Concomitant]
     Indication: AMNESIA
     Dosage: 9.5 MG
     Route: 061
  4. CELEBREX [Concomitant]
     Indication: ARTHRITIS
     Dosage: 200 MG
     Route: 048
  5. MIDODRINE HCL [Concomitant]
     Indication: PRODUCT USED FOR UNKNOWN INDICATION
     Dosage: 5 MG
     Route: 048
  6. SYNTHROID [Concomitant]
     Indication: HYPOTHYROIDISM
     Dosage: 50 MCG
     Route: 048
  7. NAMENDA XR [Concomitant]
     Indication: AMNESIA
     Dosage: 7 MG
     Route: 048

REACTIONS (2)
  - Incorrect route of drug administration [Recovered/Resolved]
  - Amnesia [Not Recovered/Not Resolved]
